FAERS Safety Report 5397617-7 (Version None)
Quarter: 2007Q3

REPORT INFORMATION
  Report Type: 
  Country: None (occurrence: None)
  Receive Date: 20070726
  Receipt Date: 20070601
  Transmission Date: 20080115
  Serious: Yes (Other)
  Sender: FDA-Public Use
  Company Number: US-JNJFOC-20070705128

PATIENT
  Sex: Female

DRUGS (6)
  1. TOPAMAX [Suspect]
     Indication: EPILEPSY
  2. DIASTAT [Suspect]
     Indication: EPILEPSY
     Route: 065
  3. PHENOBARBITAL TAB [Concomitant]
  4. PHENOBARBITAL TAB [Concomitant]
     Indication: EPILEPSY
  5. CLONAZEPAM [Concomitant]
     Indication: EPILEPSY
  6. KEPPRA [Concomitant]
     Indication: EPILEPSY

REACTIONS (5)
  - GRAND MAL CONVULSION [None]
  - MYOCLONIC EPILEPSY [None]
  - PETIT MAL EPILEPSY [None]
  - RESPIRATORY ARREST [None]
  - STATUS EPILEPTICUS [None]
